FAERS Safety Report 5500428-2 (Version None)
Quarter: 2007Q4

REPORT INFORMATION
  Report Type: 
  Country: None (occurrence: None)
  Receive Date: 20071025
  Receipt Date: 20071017
  Transmission Date: 20080405
  Serious: Yes (Death)
  Sender: FDA-Public Use
  Company Number: 019751

PATIENT
  Sex: Male

DRUGS (6)
  1. CLARAVIS [Suspect]
     Indication: PINEALOBLASTOMA
     Dosage: ORAL
     Route: 048
     Dates: start: 20060829
  2. PEPCID [Concomitant]
  3. TYLENOL (CAPLET) [Concomitant]
  4. DEXAMETHASONE TAB [Concomitant]
  5. FOLIC ACID [Concomitant]
  6. ZOLOFT [Concomitant]

REACTIONS (2)
  - NEOPLASM PROGRESSION [None]
  - PINEALOBLASTOMA [None]
